FAERS Safety Report 17133320 (Version 1)
Quarter: 2019Q4

REPORT INFORMATION
  Report Type: Spontaneous
  Country: US (occurrence: US)
  Receive Date: 20191210
  Receipt Date: 20191210
  Transmission Date: 20200122
  Serious: Yes (Other)
  Sender: FDA-Public Use
  Company Number: US-UCBSA-2016034805

PATIENT
  Age: 45 Year
  Sex: Female

DRUGS (5)
  1. CARBAMAZEPINE. [Concomitant]
     Active Substance: CARBAMAZEPINE
     Indication: PRODUCT USED FOR UNKNOWN INDICATION
     Dosage: UNK
  2. LEVETIRACETAM. [Suspect]
     Active Substance: LEVETIRACETAM
     Dosage: 125 MG DAILY
     Dates: start: 201608, end: 201608
  3. PHENOBARBITAL. [Concomitant]
     Active Substance: PHENOBARBITAL
     Indication: PRODUCT USED FOR UNKNOWN INDICATION
     Dosage: UNK
  4. LEVETIRACETAM. [Suspect]
     Active Substance: LEVETIRACETAM
     Dosage: 250MG HALF TABLET, 2X/DAY (BID)
     Route: 048
     Dates: start: 201608, end: 201608
  5. LEVETIRACETAM. [Suspect]
     Active Substance: LEVETIRACETAM
     Indication: PRODUCT USED FOR UNKNOWN INDICATION
     Dosage: 250 MG, 2X/DAY (BID)
     Route: 048
     Dates: start: 201608, end: 201608

REACTIONS (5)
  - Seizure [Unknown]
  - Off label use [Unknown]
  - Balance disorder [Recovering/Resolving]
  - Dysarthria [Recovering/Resolving]
  - Generalised tonic-clonic seizure [Recovering/Resolving]

NARRATIVE: CASE EVENT DATE: 201608
